FAERS Safety Report 9476837 (Version 1)
Quarter: 2013Q3

REPORT INFORMATION
  Report Type: Spontaneous
  Country: GB (occurrence: GB)
  Receive Date: 20130826
  Receipt Date: 20130826
  Transmission Date: 20140515
  Serious: Yes (Hospitalization, Disabling, Other)
  Sender: FDA-Public Use
  Company Number: GB-WATSON-2013-14909

PATIENT
  Age: 50 Year
  Sex: Female

DRUGS (6)
  1. TRIMETHOPRIM (UNKNOWN) [Suspect]
     Indication: URINARY TRACT INFECTION
     Dosage: 1 DF, BID FOR 5 DAYS
     Route: 048
     Dates: start: 20120828, end: 20120901
  2. FLUTICASONE [Concomitant]
     Indication: PRODUCT USED FOR UNKNOWN INDICATION
     Route: 065
  3. ALVERINE [Concomitant]
     Indication: PRODUCT USED FOR UNKNOWN INDICATION
     Route: 065
  4. ETORICOXIB [Concomitant]
     Indication: PRODUCT USED FOR UNKNOWN INDICATION
     Route: 065
  5. TRANEXAMIC ACID C [Concomitant]
     Indication: PRODUCT USED FOR UNKNOWN INDICATION
     Route: 065
  6. MOVICOL                            /01625101/ [Concomitant]
     Indication: PRODUCT USED FOR UNKNOWN INDICATION
     Route: 065

REACTIONS (15)
  - Rash pruritic [Unknown]
  - Erythema [Unknown]
  - Skin exfoliation [Unknown]
  - Swelling [Unknown]
  - Chronic fatigue syndrome [Unknown]
  - Gait disturbance [Unknown]
  - Asthenopia [Unknown]
  - Hypoaesthesia oral [Unknown]
  - Sleep disorder [Unknown]
  - Eye pain [Unknown]
  - Oropharyngeal pain [Unknown]
  - Stevens-Johnson syndrome [Unknown]
  - Asthenopia [Unknown]
  - Fatigue [Unknown]
  - Asthenia [Unknown]
